FAERS Safety Report 17118181 (Version 2)
Quarter: 2020Q3

REPORT INFORMATION
  Report Type: Report from Study
  Country: IT (occurrence: IT)
  Receive Date: 20191205
  Receipt Date: 20200921
  Transmission Date: 20201102
  Serious: Yes (Other)
  Sender: FDA-Public Use
  Company Number: NVSC2019IT056976

PATIENT
  Age: 79 Year
  Sex: Female
  Weight: 64 kg

DRUGS (7)
  1. PAROXETINE. [Concomitant]
     Active Substance: PAROXETINE
     Indication: HYPERTENSION
     Dosage: 20 MG, QD
     Route: 065
  2. TRAMETINIB [Suspect]
     Active Substance: TRAMETINIB
     Indication: METASTATIC MALIGNANT MELANOMA
     Dosage: 2 MG, QD
     Route: 048
     Dates: start: 20160929, end: 201909
  3. IDROCLOROTIAZIDE [Concomitant]
     Active Substance: HYDROCHLOROTHIAZIDE
     Indication: HYPERTENSION
     Dosage: 25 MG
     Route: 065
  4. RANITIDINE. [Concomitant]
     Active Substance: RANITIDINE
     Indication: HYPERTENSION
     Dosage: 300 MG, QD
     Route: 065
  5. DABRAFENIB [Suspect]
     Active Substance: DABRAFENIB
     Indication: METASTATIC MALIGNANT MELANOMA
     Dosage: UNK
     Route: 048
     Dates: end: 202007
  6. DABRAFENIB [Suspect]
     Active Substance: DABRAFENIB
     Dosage: UNK
     Route: 048
  7. TRAMETINIB [Suspect]
     Active Substance: TRAMETINIB
     Dosage: 2 MG, QD
     Route: 048
     Dates: end: 20200820

REACTIONS (3)
  - Atrial fibrillation [Unknown]
  - Cardiac failure [Unknown]
  - Pulmonary toxicity [Recovered/Resolved]

NARRATIVE: CASE EVENT DATE: 20190802
